FAERS Safety Report 4423436-1 (Version None)
Quarter: 2004Q3

REPORT INFORMATION
  Report Type: 
  Country: None (occurrence: None)
  Receive Date: 20040806
  Receipt Date: 20040723
  Transmission Date: 20050211
  Serious: Yes (Death, Hospitalization)
  Sender: FDA-Public Use
  Company Number: 2004-06616

PATIENT
  Age: 35 Year
  Sex: Male
  Weight: 93 kg

DRUGS (5)
  1. TENOFOVIR  DF(TENOFOVIR DISOPROXIL FUMARATE) [Suspect]
     Indication: HIV INFECTION
     Dosage: 300 MG, ONCE A DAY, ORAL
     Route: 048
     Dates: start: 20031103, end: 20040127
  2. KALETRA [Concomitant]
  3. LAMIVUDINE [Concomitant]
  4. LASIX [Concomitant]
  5. SPIRONOLACTONE [Concomitant]

REACTIONS (11)
  - DEHYDRATION [None]
  - DYSPNOEA [None]
  - ENCEPHALOPATHY [None]
  - EPISTAXIS [None]
  - GENERAL PHYSICAL HEALTH DETERIORATION [None]
  - GINGIVAL BLEEDING [None]
  - HEART RATE DECREASED [None]
  - HEPATIC FAILURE [None]
  - HEPATORENAL SYNDROME [None]
  - HYPOTENSION [None]
  - RENAL FAILURE ACUTE [None]
